FAERS Safety Report 8460136-5 (Version None)
Quarter: 2012Q2

REPORT INFORMATION
  Report Type: 
  Country: None (occurrence: None)
  Receive Date: 20120323
  Receipt Date: 20110912
  Transmission Date: 20120825
  Serious: Yes (Hospitalization)
  Sender: FDA-Public Use
  Company Number: 163-21880-11091342

PATIENT
  Age: 66 Year
  Sex: Male
  Weight: 72.1219 kg

DRUGS (1)
  1. REVLIMID [Suspect]
     Indication: MYELODYSPLASTIC SYNDROME
     Dosage: 10 MG,1 IN 1 D, PO.TEMPORARILY
     Route: 048
     Dates: start: 20110301

REACTIONS (1)
  - PYREXIA [None]
